FAERS Safety Report 7489978-X (Version None)
Quarter: 2011Q2

REPORT INFORMATION
  Report Type: 
  Country: None (occurrence: None)
  Receive Date: 20110519
  Receipt Date: 20110505
  Transmission Date: 20111010
  Serious: Yes (Disabling, Other)
  Sender: FDA-Public Use
  Company Number: US-JNJFOC-20100700112

PATIENT
  Sex: Male

DRUGS (2)
  1. FENTANYL [Suspect]
     Indication: PAIN
     Route: 062
  2. FENTANYL [Suspect]
     Indication: ILL-DEFINED DISORDER
     Route: 062

REACTIONS (4)
  - DISABILITY [None]
  - DRUG INEFFECTIVE [None]
  - BEDRIDDEN [None]
  - ROAD TRAFFIC ACCIDENT [None]
